FAERS Safety Report 11363412 (Version 3)
Quarter: 2015Q4

REPORT INFORMATION
  Report Type: Report from Study
  Country: CA (occurrence: CA)
  Receive Date: 20150811
  Receipt Date: 20151112
  Transmission Date: 20160304
  Serious: Yes (Life-Threatening, Hospitalization)
  Sender: FDA-Public Use
  Company Number: CA-ROCHE-1604939

PATIENT
  Age: 70 Year
  Sex: Female

DRUGS (15)
  1. ACTEMRA [Suspect]
     Active Substance: TOCILIZUMAB
     Indication: TEMPORAL ARTERITIS
     Route: 042
     Dates: start: 20150706
  2. DENOSUMAB [Concomitant]
     Active Substance: DENOSUMAB
     Route: 058
  3. METHOTREXATE [Concomitant]
     Active Substance: METHOTREXATE
     Route: 065
     Dates: start: 201503
  4. BROMELAIN [Concomitant]
     Active Substance: BROMELAINS
  5. METHOTREXATE [Concomitant]
     Active Substance: METHOTREXATE
     Route: 065
     Dates: start: 201301
  6. COVERSYL [Concomitant]
     Active Substance: PERINDOPRIL
     Route: 065
  7. FOLIC ACID. [Concomitant]
     Active Substance: FOLIC ACID
  8. PREDNISONE. [Concomitant]
     Active Substance: PREDNISONE
     Route: 065
     Dates: start: 201409
  9. PREDNISONE. [Concomitant]
     Active Substance: PREDNISONE
     Route: 065
  10. VITAMIN C [Concomitant]
     Active Substance: ASCORBIC ACID
  11. HCTZ [Concomitant]
     Active Substance: HYDROCHLOROTHIAZIDE
     Route: 065
  12. ASA EC [Concomitant]
     Route: 065
  13. VITAMIN B12 [Concomitant]
     Active Substance: CYANOCOBALAMIN
  14. TYLENOL [Concomitant]
     Active Substance: ACETAMINOPHEN
  15. PREDNISONE. [Concomitant]
     Active Substance: PREDNISONE
     Route: 048

REACTIONS (19)
  - Leukocytosis [Unknown]
  - Constipation [Not Recovered/Not Resolved]
  - Abscess [Unknown]
  - Cough [Unknown]
  - Anaemia [Unknown]
  - Abdominal pain [Recovered/Resolved]
  - Neutrophil count increased [Not Recovered/Not Resolved]
  - Urticaria [Recovered/Resolved]
  - Hypotension [Unknown]
  - Pyrexia [Unknown]
  - Abdominal pain upper [Not Recovered/Not Resolved]
  - Blood pressure fluctuation [Unknown]
  - Pelvic abscess [Unknown]
  - Pelvic haemorrhage [Unknown]
  - C-reactive protein increased [Not Recovered/Not Resolved]
  - Thrombocytosis [Unknown]
  - Diverticular perforation [Recovered/Resolved]
  - Chills [Unknown]
  - Pain [Unknown]

NARRATIVE: CASE EVENT DATE: 20150706
